FAERS Safety Report 9905461 (Version 2)
Quarter: 2014Q1

REPORT INFORMATION
  Report Type: Spontaneous
  Country: US (occurrence: US)
  Receive Date: 20140218
  Receipt Date: 20140218
  Transmission Date: 20141002
  Serious: Yes (Hospitalization)
  Sender: FDA-Public Use
  Company Number: US-GLAXOSMITHKLINE-A0833411A

PATIENT
  Sex: Male
  Weight: 124.5 kg

DRUGS (8)
  1. AVANDIA [Suspect]
     Indication: TYPE 2 DIABETES MELLITUS
     Dosage: 4MG TWICE PER DAY
     Route: 048
     Dates: start: 1999, end: 2006
  2. METOPROLOL [Concomitant]
  3. OMEPRAZOLE [Concomitant]
  4. LISINOPRIL [Concomitant]
  5. GABAPENTIN [Concomitant]
  6. GLIPIZIDE [Concomitant]
  7. SIMVASTATIN [Concomitant]
  8. FLUOXETINE [Concomitant]

REACTIONS (9)
  - Thrombosis [Unknown]
  - Transient ischaemic attack [Unknown]
  - Aortic aneurysm repair [Unknown]
  - Cardiac disorder [Unknown]
  - Arrhythmia [Unknown]
  - Cardiac failure congestive [Unknown]
  - Supraventricular tachycardia [Unknown]
  - Myocardial infarction [Unknown]
  - Angina unstable [Unknown]
